FAERS Safety Report 16151905 (Version 1)
Quarter: 2019Q2

REPORT INFORMATION
  Report Type: Spontaneous
  Country: FR (occurrence: FR)
  Receive Date: 20190403
  Receipt Date: 20190403
  Transmission Date: 20190711
  Serious: Yes (Other)
  Sender: FDA-Public Use
  Company Number: FR-SUN PHARMACEUTICAL INDUSTRIES LTD-2019RR-203800

PATIENT
  Age: 61 Year
  Sex: Female
  Weight: 55 kg

DRUGS (12)
  1. 5-FU [Suspect]
     Active Substance: FLUOROURACIL
     Indication: COLORECTAL CANCER METASTATIC
     Dosage: 624 MG, UNK
     Route: 040
     Dates: start: 20160926
  2. OXALIPLATIN. [Suspect]
     Active Substance: OXALIPLATIN
     Indication: COLORECTAL CANCER METASTATIC
     Dosage: 106.08 MG, UNK
     Route: 065
     Dates: start: 20160926
  3. AVASTIN [Suspect]
     Active Substance: BEVACIZUMAB
     Indication: PRODUCT USED FOR UNKNOWN INDICATION
     Dosage: 265 MG, UNK
     Route: 065
     Dates: start: 20170626
  4. 5-FU [Suspect]
     Active Substance: FLUOROURACIL
     Indication: PRODUCT USED FOR UNKNOWN INDICATION
     Dosage: 3744 MG, UNK
     Route: 041
     Dates: start: 20160926
  5. 5-FU [Suspect]
     Active Substance: FLUOROURACIL
     Dosage: 308 MILLIGRAM, UNK
     Route: 040
     Dates: start: 20170626
  6. AVASTIN [Suspect]
     Active Substance: BEVACIZUMAB
     Indication: COLORECTAL CANCER METASTATIC
     Dosage: 275 MG, UNK
     Route: 065
     Dates: start: 20160926
  7. CALCIUM LEVOFOLINATE [Suspect]
     Active Substance: LEVOLEUCOVORIN CALCIUM
     Indication: COLORECTAL CANCER METASTATIC
     Dosage: 312 MG, UNK
     Route: 065
     Dates: start: 20160926
  8. CALCIUM LEVOFOLINATE [Suspect]
     Active Substance: LEVOLEUCOVORIN CALCIUM
     Indication: PRODUCT USED FOR UNKNOWN INDICATION
     Dosage: 308 MG, UNK
     Route: 065
     Dates: start: 20170626
  9. LIORESAL [Concomitant]
     Active Substance: BACLOFEN
     Indication: PRODUCT USED FOR UNKNOWN INDICATION
     Dosage: AT 10 MG 6 TIMES PER DAY
     Route: 065
  10. LERCANIDIPINE [Concomitant]
     Active Substance: LERCANIDIPINE
     Indication: HYPERTENSION
     Dosage: 5 MG, UNK
     Route: 048
  11. TANAKAN [Concomitant]
     Active Substance: GINKGO
     Indication: PRODUCT USED FOR UNKNOWN INDICATION
     Dosage: 40 MILLIGRAM, DAILY
     Route: 065
  12. 5-FU [Suspect]
     Active Substance: FLUOROURACIL
     Dosage: 3696 MILLIGRAM, UNK
     Route: 041
     Dates: start: 20170626

REACTIONS (3)
  - Pulmonary embolism [Not Recovered/Not Resolved]
  - Hypertension [Recovered/Resolved]
  - Hypertension [Unknown]

NARRATIVE: CASE EVENT DATE: 20161118
